FAERS Safety Report 16061611 (Version 1)
Quarter: 2019Q2

REPORT INFORMATION
  Report Type: Spontaneous
  Country: US (occurrence: US)
  Receive Date: 20190312
  Receipt Date: 20190312
  Transmission Date: 20190711
  Serious: No
  Sender: FDA-Public Use
  Company Number: None

PATIENT
  Age: 34 Year
  Sex: Male
  Weight: 87.75 kg

DRUGS (22)
  1. TESTOSTERONE GEL PACKETS [Suspect]
     Active Substance: TESTOSTERONE
     Indication: TESTICULAR FAILURE
     Route: 062
  2. METAXALONE. [Concomitant]
     Active Substance: METAXALONE
  3. AZELASTINE. [Concomitant]
     Active Substance: AZELASTINE HYDROCHLORIDE
  4. LUBIPROSTONE [Concomitant]
     Active Substance: LUBIPROSTONE
  5. CENTRUM SILVER [Concomitant]
     Active Substance: MINERALS\VITAMINS
  6. LYRICA [Concomitant]
     Active Substance: PREGABALIN
  7. MIRALAX [Concomitant]
     Active Substance: POLYETHYLENE GLYCOL 3350
  8. SENOKOT [Concomitant]
     Active Substance: SENNOSIDES
  9. CALCIUM [Concomitant]
     Active Substance: CALCIUM
  10. LOVAZA [Concomitant]
     Active Substance: OMEGA-3-ACID ETHYL ESTERS
  11. PROMETHAZINE [Concomitant]
     Active Substance: PROMETHAZINE\PROMETHAZINE HYDROCHLORIDE
  12. KLONOPIN [Concomitant]
     Active Substance: CLONAZEPAM
  13. ALBUTEROL NEBS [Concomitant]
  14. DILAUDID [Concomitant]
     Active Substance: HYDROMORPHONE HYDROCHLORIDE
  15. AMBIEN [Concomitant]
     Active Substance: ZOLPIDEM TARTRATE
  16. LIDODERM [Concomitant]
     Active Substance: LIDOCAINE
  17. AMINO ACID [Concomitant]
     Active Substance: AMINO ACIDS
  18. XANAX [Concomitant]
     Active Substance: ALPRAZOLAM
  19. VITAMIN B12 [Concomitant]
     Active Substance: CYANOCOBALAMIN
  20. PROZAC [Concomitant]
     Active Substance: FLUOXETINE HYDROCHLORIDE
  21. PROBIOTIC [Concomitant]
     Active Substance: PROBIOTICS NOS
  22. METHADONE [Concomitant]
     Active Substance: METHADONE HYDROCHLORIDE

REACTIONS (3)
  - Pruritus [None]
  - Rash [None]
  - Product substitution issue [None]

NARRATIVE: CASE EVENT DATE: 20160101
